FAERS Safety Report 21851308 (Version 2)
Quarter: 2023Q2

REPORT INFORMATION
  Report Type: Spontaneous
  Country: US (occurrence: US)
  Receive Date: 20230112
  Receipt Date: 20230419
  Transmission Date: 20230721
  Serious: Yes (Other)
  Sender: FDA-Public Use
  Company Number: US-BRISTOL-MYERS SQUIBB COMPANY-2023-004234

PATIENT
  Age: 70 Year
  Sex: Female
  Weight: 122 kg

DRUGS (1)
  1. POMALYST [Suspect]
     Active Substance: POMALIDOMIDE
     Indication: Plasma cell myeloma
     Dosage: 3WKON/1WKOFF, FREQUENCY: 21
     Route: 048

REACTIONS (2)
  - Ankle fracture [Not Recovered/Not Resolved]
  - Neuropathy peripheral [Unknown]
